FAERS Safety Report 15044619 (Version 1)
Quarter: 2018Q2

REPORT INFORMATION
  Report Type: Spontaneous
  Country: BE (occurrence: BE)
  Receive Date: 20180531
  Receipt Date: 20180531
  Transmission Date: 20180711
  Serious: Yes (Hospitalization)
  Sender: FDA-Public Use
  Company Number: None

PATIENT
  Age: 39 Year
  Sex: Male
  Weight: 81.2 kg

DRUGS (4)
  1. IFOSFAMIDE. [Suspect]
     Active Substance: IFOSFAMIDE
     Dates: end: 20180522
  2. TAXOL [Suspect]
     Active Substance: PACLITAXEL
     Dates: end: 20180518
  3. CISPLATIN. [Suspect]
     Active Substance: CISPLATIN
     Dates: end: 20180522
  4. G-CSF (FILGRASTIM, AMGEN) [Suspect]
     Active Substance: FILGRASTIM
     Dates: end: 20180518

REACTIONS (2)
  - Neutrophil count decreased [None]
  - Platelet count decreased [None]

NARRATIVE: CASE EVENT DATE: 20180528
